FAERS Safety Report 13274363 (Version 2)
Quarter: 2017Q1

REPORT INFORMATION
  Report Type: Spontaneous
  Country: JP (occurrence: JP)
  Receive Date: 20170227
  Receipt Date: 20170308
  Transmission Date: 20170428
  Serious: Yes (Other)
  Sender: FDA-Public Use
  Company Number: JP-MALLINCKRODT-T201700714

PATIENT
  Age: 47 Year
  Sex: Female
  Weight: 54 kg

DRUGS (8)
  1. METHADONE [Suspect]
     Active Substance: METHADONE HYDROCHLORIDE
     Indication: CANCER PAIN
     Dosage: 10 MG, DAILY DOSE 30 MG
     Route: 048
     Dates: start: 20141027, end: 20141105
  2. OXINORM [Concomitant]
     Active Substance: OXYCODONE HYDROCHLORIDE
     Indication: ANALGESIC THERAPY
     Dosage: 30-60 MG, PRN
     Route: 048
     Dates: start: 20141026
  3. LYRICA [Concomitant]
     Active Substance: PREGABALIN
     Indication: ANALGESIC THERAPY
     Dosage: 300 MG, UNK
     Route: 048
     Dates: start: 20141024, end: 20141218
  4. ZYPREXA [Concomitant]
     Active Substance: OLANZAPINE
     Dosage: 5 MG, UNK
     Route: 048
     Dates: start: 20141024, end: 20141028
  5. VOLTAREN [Concomitant]
     Active Substance: DICLOFENAC SODIUM
     Indication: ANALGESIC THERAPY
     Dosage: 25 MG, UNK
     Route: 048
     Dates: start: 20141024, end: 20141110
  6. METHADONE [Suspect]
     Active Substance: METHADONE HYDROCHLORIDE
     Dosage: 15 MG, DAILY DOSE 45 MG
     Route: 048
     Dates: start: 20141105, end: 20141201
  7. OXIFAST [Concomitant]
     Active Substance: OXYCODONE
     Indication: ANALGESIC THERAPY
     Dosage: 6-15 MG, PRN
     Route: 048
     Dates: start: 20141201
  8. CALONAL [Concomitant]
     Active Substance: ACETAMINOPHEN
     Indication: ANALGESIC THERAPY
     Dosage: 180 MG, UNK
     Route: 048
     Dates: start: 20140926

REACTIONS (1)
  - Deep vein thrombosis [Recovering/Resolving]

NARRATIVE: CASE EVENT DATE: 20141121
